FAERS Safety Report 24020813 (Version 1)
Quarter: 2024Q2

REPORT INFORMATION
  Report Type: Spontaneous
  Country: US (occurrence: None)
  Receive Date: 20240627
  Receipt Date: 20240627
  Transmission Date: 20240716
  Serious: Yes (Death)
  Sender: FDA-Public Use
  Company Number: None

PATIENT
  Age: 86 Year
  Sex: Male
  Weight: 52.74 kg

DRUGS (20)
  1. REVLIMID [Suspect]
     Active Substance: LENALIDOMIDE
     Indication: Plasma cell myeloma
     Dosage: FREQUENCY : DAILY;?
     Route: 048
     Dates: start: 20230723, end: 20240616
  2. Revlimid 15 mg [Concomitant]
  3. brimonidine tartrate (bulk) [Concomitant]
  4. DARATUMUMAB [Concomitant]
  5. DEXAMETHASONE [Concomitant]
  6. MONTELUKAST [Concomitant]
  7. oxycodone-acetaminophen [Concomitant]
  8. VITAMIN B COMPLEX [Concomitant]
  9. XARELTO [Concomitant]
  10. acyclovir [Concomitant]
  11. Benadryl [Concomitant]
  12. ONDANSETRON [Concomitant]
  13. IRON [Concomitant]
  14. ALEVE [Concomitant]
  15. MELATONIN [Concomitant]
  16. multivitamin [Concomitant]
  17. vitamin A [Concomitant]
  18. VITAMIN B COMPLEX [Concomitant]
  19. FINASTERIDE [Concomitant]
  20. TAMSULOSIN [Concomitant]

REACTIONS (1)
  - Death [None]

NARRATIVE: CASE EVENT DATE: 20240626
